FAERS Safety Report 4813991-1 (Version None)
Quarter: 2005Q4

REPORT INFORMATION
  Report Type: 
  Country: None (occurrence: None)
  Receive Date: 20051028
  Receipt Date: 20050113
  Transmission Date: 20060501
  Serious: Yes (Other)
  Sender: FDA-Public Use
  Company Number: US-GLAXOSMITHKLINE-A0540537A

PATIENT
  Age: 40 Year
  Sex: Female

DRUGS (1)
  1. SEREVENT [Suspect]
     Indication: ASTHMA
     Dosage: 1PUFF TWICE PER DAY
     Route: 055
     Dates: start: 20041001

REACTIONS (6)
  - ASTHMA [None]
  - BRONCHITIS [None]
  - CHOKING SENSATION [None]
  - DRUG INEFFECTIVE [None]
  - MIDDLE INSOMNIA [None]
  - WHEEZING [None]
